FAERS Safety Report 5025402-4 (Version None)
Quarter: 2006Q2

REPORT INFORMATION
  Report Type: 
  Country: None (occurrence: None)
  Receive Date: 20060608
  Receipt Date: 20060526
  Transmission Date: 20061013
  Serious: Yes (Hospitalization)
  Sender: FDA-Public Use
  Company Number: 2006071502

PATIENT
  Age: 72 Year
  Sex: Male

DRUGS (1)
  1. CELEBREX [Suspect]
     Indication: ARTHRALGIA
     Dosage: 200 MG (200 MG, 1 IN 1 D)
     Dates: start: 20021201, end: 20030111

REACTIONS (5)
  - CEREBROVASCULAR ACCIDENT [None]
  - CHOLELITHIASIS [None]
  - PANCREATITIS [None]
  - RENAL IMPAIRMENT [None]
  - SYNCOPE [None]
